FAERS Safety Report 9723232 (Version 1)
Quarter: 2013Q4

REPORT INFORMATION
  Report Type: Spontaneous
  Country: US (occurrence: None)
  Receive Date: 20131127
  Receipt Date: 20131127
  Transmission Date: 20140711
  Serious: Yes (Other)
  Sender: FDA-Public Use
  Company Number: None

PATIENT
  Age: 72 Year
  Sex: Female
  Weight: 90.72 kg

DRUGS (5)
  1. TOBRAMYCIN - DEXAMETH OPHTH [Suspect]
     Indication: EYE INFECTION VIRAL
     Dosage: 1 DROP 4 TIMES DAILY INTO LEFT EYE.?4 X DAILY?DROP INTO LEFT EYE.
     Dates: start: 20131008, end: 20131015
  2. LISINOPRIL [Concomitant]
  3. BRIMONIDINE TARTRATE [Concomitant]
  4. TIMOLOL [Concomitant]
  5. ASPIRIN [Concomitant]

REACTIONS (2)
  - Swelling face [None]
  - Fatigue [None]
